FAERS Safety Report 15027329 (Version 3)
Quarter: 2018Q3

REPORT INFORMATION
  Report Type: Report from Study
  Country: DE (occurrence: DE)
  Receive Date: 20180619
  Receipt Date: 20180903
  Transmission Date: 20181010
  Serious: Yes (Hospitalization)
  Sender: FDA-Public Use
  Company Number: DE-TEVA-2018-DE-909114

PATIENT
  Sex: Female
  Weight: 116 kg

DRUGS (5)
  1. SIMPONI [Suspect]
     Active Substance: GOLIMUMAB
     Route: 058
     Dates: start: 201701, end: 201707
  2. SIMPONI [Suspect]
     Active Substance: GOLIMUMAB
     Indication: RHEUMATOID ARTHRITIS
     Route: 058
     Dates: start: 201607, end: 201609
  3. BENEPALI [Concomitant]
     Active Substance: ETANERCEPT
     Dates: start: 201708
  4. METHOTREXATE. [Suspect]
     Active Substance: METHOTREXATE
     Indication: PRODUCT USED FOR UNKNOWN INDICATION
     Dosage: DOSAGE FORM: UNSPECIFIED
     Route: 065
  5. METHOTREXATE. [Suspect]
     Active Substance: METHOTREXATE
     Route: 065

REACTIONS (14)
  - Atrial fibrillation [Unknown]
  - Vomiting [Unknown]
  - Bronchitis [Unknown]
  - Angina pectoris [Recovered/Resolved]
  - Periarthritis [Recovered/Resolved]
  - Osteoarthritis [Unknown]
  - Herpes simplex [Unknown]
  - Hypertensive crisis [Recovered/Resolved]
  - Chest discomfort [Recovered/Resolved]
  - Atrial fibrillation [Unknown]
  - Hypokalaemia [Unknown]
  - Hypertension [Recovered/Resolved]
  - Arthroscopy [Unknown]
  - Tendon rupture [Unknown]

NARRATIVE: CASE EVENT DATE: 20160808
